FAERS Safety Report 9638903 (Version 2)
Quarter: 2013Q4

REPORT INFORMATION
  Report Type: Spontaneous
  Country: US (occurrence: US)
  Receive Date: 20131022
  Receipt Date: 20131022
  Transmission Date: 20140711
  Serious: No
  Sender: FDA-Public Use
  Company Number: US-BRISTOL-MYERS SQUIBB COMPANY-19103902

PATIENT
  Age: 68 Year
  Sex: Female
  Weight: 68.03 kg

DRUGS (20)
  1. ELIQUIS [Suspect]
  2. COUMADIN TABS [Concomitant]
  3. PLAVIX [Concomitant]
     Indication: CARDIAC PACEMAKER INSERTION
  4. BIOTIN [Concomitant]
  5. CARVEDILOL [Concomitant]
  6. BENADRYL [Concomitant]
  7. FOLIC ACID [Concomitant]
  8. HYDROCHLOROTHIAZIDE [Concomitant]
  9. LIPITOR [Concomitant]
  10. LISINOPRIL [Concomitant]
     Dosage: 1DF:20 UNITS NOS
  11. VITAMINS [Concomitant]
  12. MECLIZINE [Concomitant]
     Indication: DIZZINESS
  13. MUCINEX [Concomitant]
     Indication: PARANASAL SINUS HYPERSECRETION
  14. MULTIVITAMINS [Concomitant]
  15. NIACIN [Concomitant]
  16. BABY ASPIRIN [Concomitant]
  17. TOVIAZ [Concomitant]
  18. B COMPLEX 100 [Concomitant]
  19. VITAMIN D [Concomitant]
  20. ZINC [Concomitant]

REACTIONS (2)
  - Musculoskeletal chest pain [Recovered/Resolved]
  - Constipation [Recovered/Resolved]
